FAERS Safety Report 15200467 (Version 1)
Quarter: 2018Q3

REPORT INFORMATION
  Report Type: Spontaneous
  Country: US (occurrence: US)
  Receive Date: 20180726
  Receipt Date: 20180726
  Transmission Date: 20181010
  Serious: Yes (Hospitalization)
  Sender: FDA-Public Use
  Company Number: US-B.I. PHARMACEUTICALS,INC./RIDGEFIELD-2018-BI-037298

PATIENT
  Age: 78 Year
  Sex: Female

DRUGS (1)
  1. SPIRIVA [Suspect]
     Active Substance: TIOTROPIUM BROMIDE MONOHYDRATE
     Indication: PRODUCT USED FOR UNKNOWN INDICATION
     Dosage: ACTION(S) TAKEN WITH PRODUCT: DRUG WITHDRAWN
     Route: 055
     Dates: start: 2012, end: 2014

REACTIONS (12)
  - Food poisoning [Unknown]
  - Thrombosis [Unknown]
  - Dizziness [Unknown]
  - Micturition urgency [Unknown]
  - Gastrointestinal infection [Unknown]
  - Asthenia [Unknown]
  - Multiple allergies [Unknown]
  - Fluid retention [Unknown]
  - Bladder pain [Unknown]
  - Sinus congestion [Unknown]
  - Nausea [Unknown]
  - Poor quality sleep [Unknown]

NARRATIVE: CASE EVENT DATE: 2013
